FAERS Safety Report 11648376 (Version 1)
Quarter: 2015Q4

REPORT INFORMATION
  Report Type: Spontaneous
  Country: US (occurrence: None)
  Receive Date: 20151020
  Receipt Date: 20151020
  Transmission Date: 20160304
  Serious: No
  Sender: FDA-Public Use
  Company Number: None

PATIENT
  Age: 52 Year

DRUGS (1)
  1. PALBOCICLIB [Suspect]
     Active Substance: PALBOCICLIB
     Dosage: THEN 1 WK REST
     Route: 048
     Dates: start: 20151009

REACTIONS (4)
  - Insomnia [None]
  - Decreased appetite [None]
  - Chest pain [None]
  - Pulmonary embolism [None]
